FAERS Safety Report 8383683-3 (Version None)
Quarter: 2012Q2

REPORT INFORMATION
  Report Type: 
  Country: None (occurrence: None)
  Receive Date: 20120524
  Receipt Date: 20120515
  Transmission Date: 20120825
  Serious: Yes (Hospitalization, Other)
  Sender: FDA-Public Use
  Company Number: US-ASTRAZENECA-2012SE14182

PATIENT
  Sex: Female

DRUGS (3)
  1. NEXIUM [Suspect]
     Route: 048
  2. PRILOSEC [Suspect]
     Route: 048
  3. PULMICORT [Suspect]
     Route: 055

REACTIONS (5)
  - TOTAL LUNG CAPACITY DECREASED [None]
  - CHRONIC OBSTRUCTIVE PULMONARY DISEASE [None]
  - FIBROMYALGIA [None]
  - TYPE 2 DIABETES MELLITUS [None]
  - DRUG LEVEL CHANGED [None]
